FAERS Safety Report 10361180 (Version 1)
Quarter: 2014Q3

REPORT INFORMATION
  Report Type: Report from Study
  Country: BR (occurrence: BR)
  Receive Date: 20140804
  Receipt Date: 20140804
  Transmission Date: 20150326
  Serious: Yes (Other)
  Sender: FDA-Public Use
  Company Number: PHHY2014BR095387

PATIENT
  Age: 78 Year
  Sex: Female

DRUGS (5)
  1. EXELON PATCH [Suspect]
     Active Substance: RIVASTIGMINE
     Indication: DEMENTIA ALZHEIMER^S TYPE
     Dosage: 9MG/5CM2
     Route: 062
  2. EBIX [Concomitant]
     Indication: NERVOUS SYSTEM DISORDER
     Dosage: ONE TABLET DAILY
  3. ASPIRINA PREVENT [Concomitant]
     Active Substance: ASPIRIN
     Indication: CARDIOVASCULAR DISORDER
     Dosage: ONE TABLET DAILY
  4. EXELON PATCH [Suspect]
     Active Substance: RIVASTIGMINE
     Dosage: ONE ADHESIVE DAILY (18MG/10CM2)
     Route: 062
  5. LOTAR [Concomitant]
     Active Substance: AMLODIPINE\LOSARTAN
     Indication: HYPERTENSION
     Dosage: ONE TABLET DAILY

REACTIONS (6)
  - Diabetes mellitus [Unknown]
  - Oedema peripheral [Unknown]
  - Skin discolouration [Unknown]
  - Fall [Unknown]
  - Anxiety [Unknown]
  - Foot fracture [Unknown]

NARRATIVE: CASE EVENT DATE: 20140713
